FAERS Safety Report 24352060 (Version 1)
Quarter: 2024Q3

REPORT INFORMATION
  Report Type: Spontaneous
  Country: DE (occurrence: DE)
  Receive Date: 20240923
  Receipt Date: 20240923
  Transmission Date: 20241016
  Serious: No
  Sender: ROCHE
  Company Number: DE-ROCHE-3358711

PATIENT
  Age: 44 Year
  Sex: Female
  Weight: 88.0 kg

DRUGS (1)
  1. HERCEPTIN [Suspect]
     Active Substance: TRASTUZUMAB
     Indication: Breast cancer
     Route: 065

REACTIONS (11)
  - Oedema peripheral [Unknown]
  - Acne [Unknown]
  - Acne pustular [Unknown]
  - Rash [Unknown]
  - Nodule [Unknown]
  - Nail disorder [Unknown]
  - Onychalgia [Unknown]
  - Onychoclasis [Unknown]
  - Mental disorder [Unknown]
  - Incorrect dose administered [Unknown]
  - Off label use [Unknown]
